FAERS Safety Report 13354557 (Version 2)
Quarter: 2017Q1

REPORT INFORMATION
  Report Type: Report from Study
  Country: CO (occurrence: CO)
  Receive Date: 20170321
  Receipt Date: 20170327
  Transmission Date: 20170429
  Serious: Yes (Other)
  Sender: FDA-Public Use
  Company Number: CO-ASTRAZENECA-2016SF05183

PATIENT
  Age: 15564 Day
  Sex: Female
  Weight: 58 kg

DRUGS (1)
  1. FASLODEX [Suspect]
     Active Substance: FULVESTRANT
     Indication: BREAST CANCER FEMALE
     Route: 030
     Dates: start: 20150515

REACTIONS (8)
  - Injection site pain [Not Recovered/Not Resolved]
  - Bone pain [Unknown]
  - Injection site nodule [Not Recovered/Not Resolved]
  - Injection site inflammation [Recovering/Resolving]
  - Influenza [Not Recovered/Not Resolved]
  - Metastases to bone [Not Recovered/Not Resolved]
  - Injection site haemorrhage [Recovering/Resolving]
  - Injection site pain [Recovering/Resolving]

NARRATIVE: CASE EVENT DATE: 20160921
